FAERS Safety Report 7847510-2 (Version None)
Quarter: 2011Q4

REPORT INFORMATION
  Report Type: 
  Country: None (occurrence: None)
  Receive Date: 20111025
  Receipt Date: 20111014
  Transmission Date: 20120403
  Serious: No
  Sender: FDA-Public Use
  Company Number: US-ROXANE LABORATORIES, INC.-2011-RO-01469RO

PATIENT
  Sex: Female

DRUGS (1)
  1. FLUTICASONE PROPIONATE [Suspect]
     Indication: BRONCHITIS
     Route: 055
     Dates: start: 20111011, end: 20111012

REACTIONS (3)
  - NASAL DISCOMFORT [None]
  - SKIN EXFOLIATION [None]
  - NASAL DRYNESS [None]
